FAERS Safety Report 5074181-3 (Version None)
Quarter: 2006Q3

REPORT INFORMATION
  Report Type: 
  Country: None (occurrence: None)
  Receive Date: 20060714
  Receipt Date: 20060522
  Transmission Date: 20061208
  Serious: No
  Sender: FDA-Public Use
  Company Number: 2006SP002186

PATIENT
  Age: 70 Year
  Sex: Male

DRUGS (6)
  1. LUNESTA [Suspect]
     Indication: INSOMNIA
     Dosage: 1 MG;HS;ORAL
     Route: 048
     Dates: start: 20060412
  2. NAMENDA [Suspect]
     Indication: DEMENTIA
     Dosage: SEE IMAGE
     Route: 048
     Dates: start: 20060412, end: 20060418
  3. NAMENDA [Suspect]
     Indication: DEMENTIA
     Dosage: SEE IMAGE
     Route: 048
     Dates: start: 20060503
  4. RISPERDAL [Suspect]
     Indication: DEMENTIA
     Dosage: ORAL
     Route: 048
     Dates: start: 20060412
  5. LOVASTATIN [Concomitant]
  6. LISINOPRIL [Concomitant]

REACTIONS (1)
  - OEDEMA PERIPHERAL [None]
